FAERS Safety Report 25627208 (Version 1)
Quarter: 2025Q3

REPORT INFORMATION
  Report Type: Spontaneous
  Country: CN (occurrence: CN)
  Receive Date: 20250731
  Receipt Date: 20250731
  Transmission Date: 20251021
  Serious: Yes (Other)
  Sender: PFIZER
  Company Number: CN-PFIZER INC-PV202500091050

PATIENT
  Age: 69 Year
  Sex: Female
  Weight: 49 kg

DRUGS (2)
  1. VFEND [Suspect]
     Active Substance: VORICONAZOLE
     Indication: Fungal infection
     Dosage: 200 MG, 2X/DAY
     Route: 048
     Dates: start: 20250514
  2. VFEND [Suspect]
     Active Substance: VORICONAZOLE
     Indication: Opportunistic infection
     Dosage: 150 MG, 2X/DAY
     Route: 048
     Dates: start: 20250518, end: 20250519

REACTIONS (5)
  - Hallucination [Recovering/Resolving]
  - Chloropsia [Recovering/Resolving]
  - Xanthopsia [Recovering/Resolving]
  - Visual impairment [Recovering/Resolving]
  - Drug ineffective [Unknown]

NARRATIVE: CASE EVENT DATE: 20250516
